FAERS Safety Report 5076784-9 (Version None)
Quarter: 2006Q3

REPORT INFORMATION
  Report Type: 
  Country: None (occurrence: None)
  Receive Date: 20060725
  Receipt Date: 20060313
  Transmission Date: 20061208
  Serious: No
  Sender: FDA-Public Use
  Company Number: 200610424BWH

PATIENT
  Age: 74 Year
  Sex: Female
  Weight: 72.5755 kg

DRUGS (10)
  1. NEXAVAR [Suspect]
     Indication: LUNG NEOPLASM MALIGNANT
     Dosage: 400 MG, BID, ORAL
     Route: 048
     Dates: start: 20060117
  2. NEXAVAR [Suspect]
     Indication: RENAL CELL CARCINOMA STAGE UNSPECIFIED
     Dosage: 400 MG, BID, ORAL
     Route: 048
     Dates: start: 20060117
  3. POTASSIUM [Concomitant]
  4. TRIAMTERENE [Concomitant]
  5. SYNTHROID [Concomitant]
  6. VITAMIN CAP [Concomitant]
  7. VITAMIN D [Concomitant]
  8. FOLIC ACID [Concomitant]
  9. INTERFERON [Concomitant]
  10. GABAPENTIN [Concomitant]

REACTIONS (17)
  - ACQUIRED CLAW TOE [None]
  - ALOPECIA [None]
  - ANOREXIA [None]
  - ARTHRALGIA [None]
  - ASTHENIA [None]
  - DIARRHOEA [None]
  - DRY SKIN [None]
  - DYSGRAPHIA [None]
  - GAIT DISTURBANCE [None]
  - JOINT CONTRACTURE [None]
  - MUSCLE SPASMS [None]
  - MUSCULAR WEAKNESS [None]
  - PAIN IN EXTREMITY [None]
  - PRURITUS [None]
  - RASH GENERALISED [None]
  - TREMOR [None]
  - VISUAL ACUITY REDUCED [None]
